FAERS Safety Report 23921762 (Version 2)
Quarter: 2024Q3

REPORT INFORMATION
  Report Type: Report from Study
  Country: EG (occurrence: EG)
  Receive Date: 20240530
  Receipt Date: 20240903
  Transmission Date: 20241016
  Serious: Yes (Disabling, Other)
  Sender: NOVARTIS
  Company Number: EG-002147023-NVSC2024EG101872

PATIENT
  Age: 77 Year
  Sex: Female
  Weight: 60 kg

DRUGS (8)
  1. KISQALI [Suspect]
     Active Substance: RIBOCICLIB
     Indication: Breast cancer metastatic
     Dosage: 3 DOSAGE FORM, QD FOR 21 DAYS AND 1 WEEK OFF
     Route: 048
     Dates: start: 202310, end: 20231021
  2. KISQALI [Suspect]
     Active Substance: RIBOCICLIB
     Indication: Metastases to lymph nodes
     Dosage: 200 MG
     Route: 048
     Dates: start: 20231021, end: 202405
  3. KISQALI [Suspect]
     Active Substance: RIBOCICLIB
     Indication: Metastases to lung
     Dosage: 2 DOSAGE FORM, QD (2 TABLETS ONCE DAILY FOR 21 DAYS AND 1 WEEK OFF)
     Route: 048
     Dates: start: 202405
  4. KISQALI [Suspect]
     Active Substance: RIBOCICLIB
     Indication: Metastases to liver
     Dosage: UNK, OTHER
     Route: 048
  5. KISQALI [Suspect]
     Active Substance: RIBOCICLIB
     Indication: Metastases to bone
  6. KISQALI [Suspect]
     Active Substance: RIBOCICLIB
     Indication: Metastases to abdominal cavity
  7. FASLODEX [Concomitant]
     Active Substance: FULVESTRANT
     Indication: Breast cancer
     Dosage: 1 DOSAGE FORM, Q2W (FIRST MONTH HER DOSE WAS ONE INJECTION EVERY 2 WEEKS (TOOK 3 INJECTIONS), THEN S
     Route: 065
     Dates: start: 20230915
  8. FASLODEX [Concomitant]
     Active Substance: FULVESTRANT
     Dosage: 1 DOSAGE FORM, QMO (FIRST MONTH HER DOSE WAS ONE INJECTION EVERY 2 WEEKS (TOOK 3 INJECTIONS), THEN S
     Route: 065

REACTIONS (14)
  - Metastases to lung [Unknown]
  - Metastases to liver [Unknown]
  - Pain in extremity [Recovering/Resolving]
  - Cough [Recovering/Resolving]
  - Dyspnoea [Recovering/Resolving]
  - Chest pain [Recovering/Resolving]
  - Diarrhoea [Recovering/Resolving]
  - Insomnia [Recovering/Resolving]
  - Dizziness [Recovering/Resolving]
  - Decreased appetite [Recovering/Resolving]
  - Fatigue [Not Recovered/Not Resolved]
  - Pulmonary oedema [Not Recovered/Not Resolved]
  - Mobility decreased [Not Recovered/Not Resolved]
  - Off label use [Unknown]

NARRATIVE: CASE EVENT DATE: 20231001
